FAERS Safety Report 9867144 (Version 1)
Quarter: 2014Q1

REPORT INFORMATION
  Report Type: Spontaneous
  Country: US (occurrence: US)
  Receive Date: 20140204
  Receipt Date: 20140204
  Transmission Date: 20141002
  Serious: Yes (Hospitalization)
  Sender: FDA-Public Use
  Company Number: US-BAYER-2014-017042

PATIENT
  Age: 34 Year
  Sex: Female
  Weight: 71 kg

DRUGS (2)
  1. YAZ [Suspect]
     Route: 048
  2. ZOLOFT [Concomitant]

REACTIONS (1)
  - Pulmonary embolism [None]
